FAERS Safety Report 11562314 (Version 1)
Quarter: 2015Q3

REPORT INFORMATION
  Report Type: Spontaneous
  Country: JP (occurrence: JP)
  Receive Date: 20150928
  Receipt Date: 20150928
  Transmission Date: 20151125
  Serious: Yes (Hospitalization)
  Sender: FDA-Public Use
  Company Number: JP-IPCA LABORATORIES LIMITED-IPC201509-000620

PATIENT
  Age: 49 Year
  Sex: Male

DRUGS (5)
  1. FLECAINIDE [Concomitant]
     Active Substance: FLECAINIDE
  2. LOXOPROFEN SODIUM HYDRATE [Concomitant]
     Active Substance: LOXOPROFEN SODIUM DIHYDRATE
  3. WARFARIN [Suspect]
     Active Substance: WARFARIN
  4. ATENOLOL. [Concomitant]
     Active Substance: ATENOLOL
  5. UNFRACTIONATED HEPARIN SODIUM [Suspect]
     Active Substance: HEPARIN SODIUM

REACTIONS (10)
  - Hepatic congestion [Recovered/Resolved]
  - Atrial fibrillation [None]
  - Pericardial haemorrhage [None]
  - Blood lactate dehydrogenase increased [None]
  - Haematocrit decreased [None]
  - Haemoglobin decreased [None]
  - Pericarditis [Recovered/Resolved]
  - Cardiac tamponade [Recovered/Resolved]
  - International normalised ratio increased [Recovered/Resolved]
  - Cardiomegaly [None]
